FAERS Safety Report 8557553-1 (Version None)
Quarter: 2012Q3

REPORT INFORMATION
  Report Type: 
  Country: None (occurrence: None)
  Receive Date: 20120801
  Receipt Date: 20120723
  Transmission Date: 20120928
  Serious: Yes (Hospitalization)
  Sender: FDA-Public Use
  Company Number: FR-EISAI INC-E3810-05670-SPO-FR

PATIENT
  Sex: Male
  Weight: 110 kg

DRUGS (14)
  1. RAMIPRIL [Concomitant]
     Dates: start: 20120524
  2. PLAVIX [Suspect]
     Indication: MYOCARDIAL INFARCTION
     Route: 048
     Dates: start: 20120523, end: 20120616
  3. ATORVASTATIN [Concomitant]
  4. KRENOSIN [Concomitant]
     Route: 022
     Dates: start: 20120523
  5. OMACOR [Concomitant]
  6. DILTIAZEM HCL [Concomitant]
     Route: 013
     Dates: start: 20120523
  7. VISIPAQUE [Concomitant]
     Dates: start: 20120523
  8. ASPIRIN [Concomitant]
     Dates: start: 20120523
  9. BISOPROLOL FUMARATE [Concomitant]
     Dates: start: 20120524
  10. ISOSORBIDE DINITRATE [Concomitant]
     Route: 022
     Dates: start: 20120523
  11. RABEPRAZOLE SODIUM [Suspect]
     Route: 048
     Dates: start: 20120501, end: 20120616
  12. REOPRO [Suspect]
     Indication: MYOCARDIAL INFARCTION
     Route: 022
     Dates: start: 20120523, end: 20120523
  13. NITROGLYCERIN [Concomitant]
  14. MORPHINE SULFATE [Concomitant]
     Route: 042
     Dates: start: 20120523

REACTIONS (1)
  - AUTOIMMUNE THROMBOCYTOPENIA [None]
